FAERS Safety Report 10813545 (Version 1)
Quarter: 2015Q1

REPORT INFORMATION
  Report Type: Spontaneous
  Country: US (occurrence: US)
  Receive Date: 20150218
  Receipt Date: 20150218
  Transmission Date: 20150721
  Serious: No
  Sender: FDA-Public Use
  Company Number: US-PFIZER INC-2015060640

PATIENT
  Sex: Female

DRUGS (6)
  1. BLEPH-10 [Suspect]
     Active Substance: SULFACETAMIDE SODIUM
  2. SEPTRA DS [Suspect]
     Active Substance: SULFAMETHOXAZOLE\TRIMETHOPRIM
  3. CIPRO [Suspect]
     Active Substance: CIPROFLOXACIN HYDROCHLORIDE
  4. CODEINE SULFATE. [Suspect]
     Active Substance: CODEINE SULFATE
  5. KEFLEX [Suspect]
     Active Substance: CEPHALEXIN
  6. BIAXIN [Suspect]
     Active Substance: CLARITHROMYCIN

REACTIONS (1)
  - Drug hypersensitivity [Unknown]
